FAERS Safety Report 7216201-3 (Version None)
Quarter: 2011Q1

REPORT INFORMATION
  Report Type: 
  Country: None (occurrence: None)
  Receive Date: 20110107
  Receipt Date: 20101230
  Transmission Date: 20110831
  Serious: Yes (Other)
  Sender: FDA-Public Use
  Company Number: PHHY2010DE65286

PATIENT
  Sex: Female
  Weight: 87.2 kg

DRUGS (9)
  1. SANDIMMUNE [Suspect]
  2. SIMVAHEXAL [Concomitant]
     Dosage: 20 MG/DAY
  3. AMITRIPTYLINE HCL [Concomitant]
     Dosage: 25 MG/DAY
  4. TILIDIN [Concomitant]
     Dosage: 100 MG/8 MG PER DAY
  5. SANDIMMUNE [Suspect]
     Indication: JOINT ARTHROPLASTY
  6. IMBUN [Concomitant]
     Dosage: 500 MG/DAY
  7. ACETYLSALICYLIC ACID [Concomitant]
     Dosage: UNK
  8. SANDIMMUNE [Suspect]
     Indication: PSORIASIS
     Dosage: 200 MG, QD
     Route: 048
     Dates: start: 20100920
  9. PANTOZOL [Concomitant]
     Dosage: 20 MG/DAY

REACTIONS (1)
  - HYPERTENSIVE CRISIS [None]
